FAERS Safety Report 9795639 (Version 2)
Quarter: 2014Q1

REPORT INFORMATION
  Report Type: Spontaneous
  Country: US (occurrence: US)
  Receive Date: 20140103
  Receipt Date: 20140103
  Transmission Date: 20141002
  Serious: No
  Sender: FDA-Public Use
  Company Number: US-PFIZER INC-2013157310

PATIENT
  Age: 54 Year
  Sex: Male

DRUGS (6)
  1. VIAGRA [Suspect]
     Dosage: 100 MG, AS NEEDED (1 QD PRN)
     Route: 048
  2. SOMA [Concomitant]
  3. NORCO [Concomitant]
  4. SIMVASTATIN [Concomitant]
  5. HUMALOG [Concomitant]
  6. LANTUS [Concomitant]

REACTIONS (2)
  - Nasopharyngitis [Unknown]
  - Cough [Unknown]
